FAERS Safety Report 12056758 (Version 1)
Quarter: 2016Q1

REPORT INFORMATION
  Report Type: Spontaneous
  Country: US (occurrence: US)
  Receive Date: 20160210
  Receipt Date: 20160210
  Transmission Date: 20160526
  Serious: No
  Sender: FDA-Public Use
  Company Number: US-TEVA-617475USA

PATIENT
  Age: 62 Year
  Sex: Female
  Weight: 65.83 kg

DRUGS (17)
  1. LORATADINE. [Concomitant]
     Active Substance: LORATADINE
  2. ZYDUF MELOXICAM [Suspect]
     Active Substance: MELOXICAM
     Indication: OSTEOARTHRITIS
     Dosage: ONE TABLET BY MOUTH AND THEN INCREASED TO TWO
     Dates: start: 20150826
  3. MAGNESIUM [Concomitant]
     Active Substance: MAGNESIUM
     Dosage: 500 MILLIGRAM DAILY;
  4. CYMBALTA [Concomitant]
     Active Substance: DULOXETINE HYDROCHLORIDE
     Dosage: 30 MILLIGRAM DAILY;
  5. FLONASE [Concomitant]
     Active Substance: FLUTICASONE PROPIONATE
  6. ASPIRIN. [Concomitant]
     Active Substance: ASPIRIN
  7. VATAMIN B12 [Concomitant]
  8. LIDODERM [Concomitant]
     Active Substance: LIDOCAINE
     Indication: PAIN
  9. ZOLEDRONIC ACID [Concomitant]
     Active Substance: ZOLEDRONIC ACID
  10. HYDROCODONE [Concomitant]
     Active Substance: HYDROCODONE
  11. NIFEDIPINE. [Concomitant]
     Active Substance: NIFEDIPINE
  12. TOPIRAMATE. [Concomitant]
     Active Substance: TOPIRAMATE
     Indication: MIGRAINE
     Dosage: 75 MILLIGRAM DAILY;
  13. MUCINES MD [Concomitant]
     Indication: UPPER-AIRWAY COUGH SYNDROME
  14. VITAMIN D3 [Concomitant]
     Active Substance: CHOLECALCIFEROL
  15. CELECOXIB. [Suspect]
     Active Substance: CELECOXIB
     Indication: OSTEOARTHRITIS
     Route: 048
     Dates: start: 201501, end: 201507
  16. CENTRUM MULTIVITAMIN [Concomitant]
  17. CALCIUM 600 [Concomitant]

REACTIONS (7)
  - Abdominal discomfort [Not Recovered/Not Resolved]
  - Arthritis [Not Recovered/Not Resolved]
  - Hypersomnia [Not Recovered/Not Resolved]
  - Dyspepsia [Not Recovered/Not Resolved]
  - Drug ineffective [Unknown]
  - Gastrointestinal disorder [Unknown]
  - Arthralgia [Unknown]

NARRATIVE: CASE EVENT DATE: 2015
